FAERS Safety Report 4359587-X (Version None)
Quarter: 2004Q2

REPORT INFORMATION
  Report Type: 
  Country: None (occurrence: None)
  Receive Date: 20040518
  Receipt Date: 20030226
  Transmission Date: 20050107
  Serious: Yes (Death, Life-Threatening, Hospitalization, Other)
  Sender: FDA-Public Use
  Company Number: AU-AMGEN-AUS031592

PATIENT
  Sex: Male
  Weight: 60 kg

DRUGS (3)
  1. ARANESP [Suspect]
     Route: 058
     Dates: start: 20030217, end: 20030217
  2. ASPIRIN [Concomitant]
  3. CLOPIDOGREL BISULFATE [Concomitant]

REACTIONS (6)
  - DRUG HYPERSENSITIVITY [None]
  - PALPABLE PURPURA [None]
  - PHARYNGOLARYNGEAL PAIN [None]
  - PNEUMONIA [None]
  - RASH GENERALISED [None]
  - SEPSIS [None]
